FAERS Safety Report 4784022-7 (Version None)
Quarter: 2005Q3

REPORT INFORMATION
  Report Type: 
  Country: None (occurrence: None)
  Receive Date: 20050927
  Receipt Date: 20050726
  Transmission Date: 20060218
  Serious: No
  Sender: FDA-Public Use
  Company Number: USA050290554

PATIENT
  Age: 36 Year
  Sex: Male

DRUGS (4)
  1. STRATTERA [Suspect]
     Indication: ATTENTION DEFICIT/HYPERACTIVITY DISORDER
     Dosage: 80 MG DAY
     Dates: start: 20050201
  2. ALLEGRA [Concomitant]
  3. ALLEGRA-D 12 HOUR [Concomitant]
  4. ZYRTEC [Concomitant]

REACTIONS (5)
  - DRY MOUTH [None]
  - INITIAL INSOMNIA [None]
  - SPEECH DISORDER [None]
  - SPERM COUNT DECREASED [None]
  - THIRST [None]
